FAERS Safety Report 12556218 (Version 1)
Quarter: 2016Q3

REPORT INFORMATION
  Report Type: Spontaneous
  Country: CH (occurrence: CH)
  Receive Date: 20160714
  Receipt Date: 20160714
  Transmission Date: 20161109
  Serious: Yes (Hospitalization, Other)
  Sender: FDA-Public Use
  Company Number: CH-PFIZER INC-2016332012

PATIENT
  Age: 21 Year
  Sex: Female

DRUGS (2)
  1. SIMPONI [Suspect]
     Active Substance: GOLIMUMAB
     Indication: PSORIATIC ARTHROPATHY
     Dosage: 50 MG, MONTHLY
     Route: 058
     Dates: start: 201507, end: 201606
  2. LYRICA [Suspect]
     Active Substance: PREGABALIN
     Indication: NEURALGIA
     Dosage: 150 MG, 2X/DAY
     Route: 048
     Dates: start: 201604

REACTIONS (6)
  - Visual impairment [Unknown]
  - Demyelination [Unknown]
  - Pneumonia bacterial [Recovering/Resolving]
  - Headache [Unknown]
  - Dizziness [Unknown]
  - White matter lesion [Unknown]

NARRATIVE: CASE EVENT DATE: 201604
